FAERS Safety Report 6997938-8 (Version None)
Quarter: 2010Q3

REPORT INFORMATION
  Report Type: 
  Country: None (occurrence: None)
  Receive Date: 20100920
  Receipt Date: 20100910
  Transmission Date: 20110219
  Serious: Yes (Disabling, Other)
  Sender: FDA-Public Use
  Company Number: CA-BAYER-200917690NA

PATIENT
  Age: 46 Year
  Sex: Female
  Weight: 40 kg

DRUGS (13)
  1. BETASERON [Suspect]
     Indication: RELAPSING-REMITTING MULTIPLE SCLEROSIS
     Route: 058
     Dates: start: 19960101
  2. BETASERON [Suspect]
     Dosage: TOTAL DAILY DOSE: 8 MIU
     Route: 058
     Dates: start: 20030905
  3. EFFEXOR [Concomitant]
     Indication: ANTIDEPRESSANT THERAPY
     Route: 048
  4. WELLBUTRIN [Concomitant]
     Indication: ANTIDEPRESSANT THERAPY
     Route: 048
  5. METOPROLOL [Concomitant]
     Indication: HYPERTENSION
     Route: 048
  6. TRAZODONE HCL [Concomitant]
     Indication: ANTIDEPRESSANT THERAPY
     Route: 048
  7. AMERGE [Concomitant]
     Indication: HEADACHE
     Route: 048
  8. TOPIRAMATE [Concomitant]
     Indication: MUSCLE SPASMS
     Route: 048
  9. LIPITOR [Concomitant]
  10. TYLENOL W/ CODEINE NO. 3 [Concomitant]
  11. BACLOFEN [Concomitant]
  12. TEGRETOL [Concomitant]
  13. LARIX [Concomitant]

REACTIONS (15)
  - ABDOMINAL PAIN UPPER [None]
  - APHAGIA [None]
  - ASTHENIA [None]
  - FATIGUE [None]
  - HYPOPHAGIA [None]
  - INFLUENZA LIKE ILLNESS [None]
  - LOWER RESPIRATORY TRACT INFECTION [None]
  - MOBILITY DECREASED [None]
  - MOTOR DYSFUNCTION [None]
  - MUSCLE RIGIDITY [None]
  - MUSCLE TIGHTNESS [None]
  - NERVOUSNESS [None]
  - PAPILLOMA VIRAL INFECTION [None]
  - ROAD TRAFFIC ACCIDENT [None]
  - VOMITING [None]
